FAERS Safety Report 24245251 (Version 2)
Quarter: 2024Q3

REPORT INFORMATION
  Report Type: Report from Study
  Country: US (occurrence: US)
  Receive Date: 20240823
  Receipt Date: 20240926
  Transmission Date: 20241017
  Serious: Yes (Other)
  Sender: ABBVIE
  Company Number: US-ABBVIE-5889028

PATIENT
  Sex: Female
  Weight: 74 kg

DRUGS (2)
  1. RINVOQ [Suspect]
     Active Substance: UPADACITINIB
     Indication: Rheumatoid arthritis
     Route: 048
     Dates: start: 20210217
  2. RINVOQ [Suspect]
     Active Substance: UPADACITINIB
     Indication: Rheumatoid arthritis
     Route: 048

REACTIONS (8)
  - Epidural injection [Unknown]
  - Muscle spasms [Recovering/Resolving]
  - Pain in extremity [Not Recovered/Not Resolved]
  - Fall [Not Recovered/Not Resolved]
  - Muscle spasms [Not Recovered/Not Resolved]
  - Pain [Unknown]
  - Discomfort [Unknown]
  - Back pain [Unknown]

NARRATIVE: CASE EVENT DATE: 20240101
